FAERS Safety Report 9140108 (Version 3)
Quarter: 2013Q2

REPORT INFORMATION
  Report Type: Spontaneous
  Country: US (occurrence: US)
  Receive Date: 20130305
  Receipt Date: 20130415
  Transmission Date: 20140414
  Serious: Yes (Other)
  Sender: FDA-Public Use
  Company Number: US-009507513-1302USA011990

PATIENT
  Age: 85 Year
  Sex: Male
  Weight: 203 kg

DRUGS (10)
  1. JANUVIA [Suspect]
     Indication: TYPE 2 DIABETES MELLITUS
     Dosage: 50 MG DAILY
     Route: 048
     Dates: start: 201204, end: 201302
  2. KLOR-CON [Concomitant]
  3. FUROSEMIDE [Concomitant]
  4. GLIPIZIDE [Concomitant]
  5. LOSARTAN POTASSIUM [Concomitant]
  6. NIASPAN [Concomitant]
  7. METOPROLOL [Concomitant]
  8. ASPIRIN [Concomitant]
  9. STATIN (UNSPECIFIED) [Concomitant]
  10. METAMUCIL [Concomitant]

REACTIONS (2)
  - Cardiac failure congestive [Recovered/Resolved]
  - Local swelling [Not Recovered/Not Resolved]
